FAERS Safety Report 16560401 (Version 1)
Quarter: 2019Q3

REPORT INFORMATION
  Report Type: Spontaneous
  Country: DE (occurrence: DE)
  Receive Date: 20190711
  Receipt Date: 20190711
  Transmission Date: 20191004
  Serious: Yes (Hospitalization)
  Sender: FDA-Public Use
  Company Number: DE-DRREDDYS-GER/GER/19/0111801

PATIENT
  Age: 36 Year
  Sex: Male
  Weight: 84 kg

DRUGS (2)
  1. IBUPROFEN. [Suspect]
     Active Substance: IBUPROFEN
     Indication: PRODUCT USED FOR UNKNOWN INDICATION
     Dosage: 600 MG, 1-1-1-1; BIS 28.01.2017, TABLETTEN (TABLETS)
     Route: 048
  2. AMOXI-CLAVULAN AUROBINDO 875MG/125MG [Concomitant]
     Indication: PRODUCT USED FOR UNKNOWN INDICATION
     Dosage: 875|125 MG, 1-0-1; BIS 28.01.2017, TABLETTEN (TABLETS).
     Route: 048

REACTIONS (6)
  - Fatigue [Unknown]
  - Palpitations [Unknown]
  - Melaena [Unknown]
  - Dizziness [Unknown]
  - Off label use [Unknown]
  - Product prescribing error [Unknown]

NARRATIVE: CASE EVENT DATE: 20170125
